FAERS Safety Report 9339464 (Version 2)
Quarter: 2013Q2

REPORT INFORMATION
  Report Type: Spontaneous
  Country: US (occurrence: US)
  Receive Date: 20130610
  Receipt Date: 20130617
  Transmission Date: 20140414
  Serious: No
  Sender: FDA-Public Use
  Company Number: US-009507513-1304USA014206

PATIENT
  Age: 29 Year
  Sex: Female
  Weight: 58.96 kg

DRUGS (1)
  1. CLARITIN [Suspect]
     Indication: SEASONAL ALLERGY
     Dosage: 10 MG, UNK
     Route: 048
     Dates: start: 201302

REACTIONS (3)
  - Rash [Unknown]
  - Pruritus [Unknown]
  - Hypersensitivity [Recovered/Resolved]
